FAERS Safety Report 18207886 (Version 1)
Quarter: 2020Q3

REPORT INFORMATION
  Report Type: Spontaneous
  Country: US (occurrence: US)
  Receive Date: 20200828
  Receipt Date: 20200828
  Transmission Date: 20201103
  Serious: Yes (Other)
  Sender: FDA-Public Use
  Company Number: US-SA-2020SA226332

PATIENT

DRUGS (1)
  1. XYZAL [Suspect]
     Active Substance: LEVOCETIRIZINE DIHYDROCHLORIDE
     Dosage: UNK

REACTIONS (6)
  - Pain in extremity [Unknown]
  - Near death experience [Unknown]
  - Hypoaesthesia [Unknown]
  - Chest pain [Unknown]
  - Rash [Unknown]
  - Nightmare [Unknown]
